FAERS Safety Report 20027933 (Version 2)
Quarter: 2021Q4

REPORT INFORMATION
  Report Type: Spontaneous
  Country: US (occurrence: US)
  Receive Date: 20211103
  Receipt Date: 20211123
  Transmission Date: 20220303
  Serious: Yes (Life-Threatening, Hospitalization, Other)
  Sender: FDA-Public Use
  Company Number: US-AUROBINDO-AUR-APL-2021-020898

PATIENT
  Age: 48 Year
  Sex: Male

DRUGS (1)
  1. AMIODARONE HYDROCHLORIDE [Suspect]
     Active Substance: AMIODARONE HYDROCHLORIDE
     Indication: Ventricular fibrillation
     Dosage: UNK
     Route: 065

REACTIONS (5)
  - Hyperthyroidism [Recovered/Resolved]
  - Ventricular arrhythmia [Recovered/Resolved]
  - Stress cardiomyopathy [Recovered/Resolved]
  - Thyrotoxic periodic paralysis [Recovered/Resolved]
  - Hypokalaemia [Recovered/Resolved]
